FAERS Safety Report 4264878-7 (Version None)
Quarter: 2004Q1

REPORT INFORMATION
  Report Type: 
  Country: None (occurrence: None)
  Receive Date: 20040105
  Receipt Date: 20031222
  Transmission Date: 20041129
  Serious: Yes (Hospitalization)
  Sender: FDA-Public Use
  Company Number: 03P-056-0236613-00

PATIENT
  Age: 61 Year
  Sex: Male

DRUGS (4)
  1. TRICOR [Suspect]
     Indication: HYPERCHOLESTEROLAEMIA
     Dosage: 1 DOSAGE FORMS, 1 IN 1 D, PER ORAL
     Route: 048
     Dates: end: 20030903
  2. ACTOS [Suspect]
     Indication: DIABETES MELLITUS NON-INSULIN-DEPENDENT
     Dosage: 30 MG, 1 IN 1 D, PER ORAL
     Route: 048
     Dates: start: 20020901, end: 20030903
  3. GLIMEPIRIDE [Suspect]
     Indication: DIABETES MELLITUS NON-INSULIN-DEPENDENT
     Dosage: 1.5 DOSAGE FORMS, 1 IN 1 D, PER ORAL
     Route: 048
     Dates: end: 20030903
  4. KARVEA HCT [Suspect]
     Indication: HYPERTENSION
     Dosage: 1 DOSAGE FORMS, 1 IN 1 D, PER ORAL
     Route: 048
     Dates: end: 20030903

REACTIONS (11)
  - ACUTE PULMONARY OEDEMA [None]
  - BLOOD ALKALINE PHOSPHATASE INCREASED [None]
  - DUODENAL STENOSIS [None]
  - HEPATOMEGALY [None]
  - HYPOXIA [None]
  - LEUKOCYTOSIS [None]
  - PANCREATIC PSEUDOCYST [None]
  - PANCREATITIS ACUTE [None]
  - RESPIRATORY FAILURE [None]
  - TACHYPNOEA [None]
  - VOMITING [None]
